FAERS Safety Report 22539407 (Version 2)
Quarter: 2023Q2

REPORT INFORMATION
  Report Type: Other
  Country: None (occurrence: US)
  Receive Date: 20230609
  Receipt Date: 20230629
  Transmission Date: 20230722
  Serious: Yes (Other)
  Sender: FDA-Public Use
  Company Number: US-Fagron Sterile Services-2142515

PATIENT
  Age: 30 Year
  Sex: Female
  Weight: 76 kg

DRUGS (1)
  1. OXYTOCIN [Suspect]
     Active Substance: OXYTOCIN

REACTIONS (1)
  - Hypersensitivity [None]
